FAERS Safety Report 16314882 (Version 3)
Quarter: 2019Q2

REPORT INFORMATION
  Report Type: Report from Study
  Country: JP (occurrence: JP)
  Receive Date: 20190515
  Receipt Date: 20190528
  Transmission Date: 20190711
  Serious: Yes (Death, Other)
  Sender: FDA-Public Use
  Company Number: JP-BRISTOL-MYERS SQUIBB COMPANY-BMS-2019-047112

PATIENT
  Age: 62 Year
  Sex: Female
  Weight: 52.8 kg

DRUGS (12)
  1. MEDICON [DEXTROMETHORPHAN HYDROBROMIDE] [Concomitant]
     Active Substance: DEXTROMETHORPHAN HYDROBROMIDE
     Indication: COUGH
     Dosage: 15 MILLIGRAM, Q8H
     Route: 048
     Dates: start: 20190424, end: 20190510
  2. ASACOL [Concomitant]
     Active Substance: MESALAMINE
     Indication: COLITIS ULCERATIVE
     Dosage: 400 MILLIGRAM, QD
     Route: 048
  3. MEVALOTIN [Concomitant]
     Active Substance: PRAVASTATIN SODIUM
     Indication: HYPERLIPIDAEMIA
     Dosage: 10 MILLIGRAM, QD
     Route: 048
  4. MAGMITT [Concomitant]
     Active Substance: MAGNESIUM OXIDE
     Indication: CONSTIPATION
     Dosage: 330 MILLIGRAM, Q8H
     Route: 048
  5. CALONAL [Concomitant]
     Active Substance: ACETAMINOPHEN
     Indication: TUMOUR ASSOCIATED FEVER
     Dosage: 400 MILLIGRAM
     Route: 048
     Dates: start: 20190424, end: 20190510
  6. TRANEXAMIC ACID. [Concomitant]
     Active Substance: TRANEXAMIC ACID
     Indication: HAEMORRHAGE
     Dosage: 250 MILLIGRAM, Q8H
     Route: 048
     Dates: start: 20190508, end: 20190510
  7. CODEINE PHOSPHATE [Concomitant]
     Active Substance: CODEINE PHOSPHATE
     Indication: COUGH
     Dosage: 0.6 GRAM, Q8H
     Route: 048
     Dates: start: 20190508, end: 20190510
  8. RANMARK [Concomitant]
     Active Substance: DENOSUMAB
     Indication: BONE LESION
     Dosage: 120 MILLIGRAM, Q4WK
     Route: 058
     Dates: start: 20190327, end: 20190424
  9. NIVOLUMAB [Suspect]
     Active Substance: NIVOLUMAB
     Indication: OVARIAN CANCER
     Dosage: UNK, Q2WK
     Route: 041
     Dates: start: 20190410
  10. CARBAZOCHROME SULFONATE NA [Concomitant]
     Indication: HAEMORRHAGE
     Dosage: 30 MILLIGRAM, Q12H
     Route: 048
     Dates: start: 20190508, end: 20190510
  11. NAPROXEN. [Suspect]
     Active Substance: NAPROXEN
     Indication: TUMOUR ASSOCIATED FEVER
     Dosage: 100 MILLIGRAM, Q12H
     Route: 048
     Dates: start: 20190424, end: 20190510
  12. LIXIANA [Concomitant]
     Active Substance: EDOXABAN TOSYLATE
     Indication: VENOUS THROMBOSIS LIMB
     Dosage: 30 MILLIGRAM, QD
     Route: 048

REACTIONS (1)
  - Multiple organ dysfunction syndrome [Fatal]

NARRATIVE: CASE EVENT DATE: 20190511
